FAERS Safety Report 10151219 (Version 1)
Quarter: 2014Q2

REPORT INFORMATION
  Report Type: Spontaneous
  Country: US (occurrence: US)
  Receive Date: 20140502
  Receipt Date: 20140502
  Transmission Date: 20141212
  Serious: Yes (Other)
  Sender: FDA-Public Use
  Company Number: US-ASTRAZENECA-2014SE15956

PATIENT
  Sex: Male

DRUGS (3)
  1. PRILOSEC OTC [Suspect]
     Indication: GASTROOESOPHAGEAL REFLUX DISEASE
     Route: 048
  2. CHEMO TREATMENTS [Concomitant]
  3. JUST VITAMINS [Concomitant]

REACTIONS (1)
  - Pancreatitis [Unknown]
